FAERS Safety Report 9766061 (Version 1)
Quarter: 2013Q4

REPORT INFORMATION
  Report Type: Spontaneous
  Country: US (occurrence: US)
  Receive Date: 20131217
  Receipt Date: 20131217
  Transmission Date: 20140711
  Serious: No
  Sender: FDA-Public Use
  Company Number: US-GLAXOSMITHKLINE-A1017344A

PATIENT
  Age: 51 Year
  Sex: Male
  Weight: 70 kg

DRUGS (4)
  1. VOTRIENT [Suspect]
     Indication: PRODUCT USED FOR UNKNOWN INDICATION
     Dosage: 800MG PER DAY
     Route: 048
  2. VITAMIN C [Concomitant]
  3. LOVASTATIN [Concomitant]
  4. ASPIRIN LOW DOSE [Concomitant]

REACTIONS (2)
  - Decreased appetite [Unknown]
  - Food intolerance [Unknown]
